FAERS Safety Report 5463096-4 (Version None)
Quarter: 2007Q3

REPORT INFORMATION
  Report Type: 
  Country: None (occurrence: None)
  Receive Date: 20070918
  Receipt Date: 20070918
  Transmission Date: 20080115
  Serious: Yes (Other)
  Sender: FDA-Public Use
  Company Number: None

PATIENT
  Age: 46 Year
  Sex: Female
  Weight: 68.0396 kg

DRUGS (1)
  1. TRAMADOL HCL [Suspect]
     Indication: HEADACHE
     Dates: start: 20051015, end: 20051018

REACTIONS (8)
  - CONFUSIONAL STATE [None]
  - CONVULSION [None]
  - DISORIENTATION [None]
  - DIZZINESS [None]
  - DYSKINESIA [None]
  - DYSPHEMIA [None]
  - FEELING ABNORMAL [None]
  - GAIT DISTURBANCE [None]
